FAERS Safety Report 18210167 (Version 3)
Quarter: 2021Q1

REPORT INFORMATION
  Report Type: Report from Study
  Country: CO (occurrence: CO)
  Receive Date: 20200829
  Receipt Date: 20210213
  Transmission Date: 20210419
  Serious: Yes (Hospitalization)
  Sender: FDA-Public Use
  Company Number: NVSC2020CO122579

PATIENT
  Age: 24 Year
  Sex: Male
  Weight: 74 kg

DRUGS (9)
  1. OMEPRAZOLE. [Concomitant]
     Active Substance: OMEPRAZOLE
     Indication: GASTRITIS PROPHYLAXIS
     Dosage: UNK, QD
     Route: 048
  2. REVOLADE [Suspect]
     Active Substance: ELTROMBOPAG OLAMINE
     Indication: IMMUNE THROMBOCYTOPENIA
     Dosage: 50 MG, QD (STARTED 4 MONTHS AGO)
     Route: 048
  3. FOLIC ACID. [Concomitant]
     Active Substance: FOLIC ACID
     Indication: IMMUNE THROMBOCYTOPENIA
     Dosage: UNK, QOD
     Route: 048
  4. REVOLADE [Suspect]
     Active Substance: ELTROMBOPAG OLAMINE
     Indication: THROMBOCYTOPENIC PURPURA
     Dosage: 50 MG, QD
     Route: 048
     Dates: start: 202001
  5. PREDNISOLONE. [Concomitant]
     Active Substance: PREDNISOLONE
     Dosage: 25 MG, QOD (STARTED 3 YEARS AGO)
     Route: 048
  6. PREDNISOLONE. [Concomitant]
     Active Substance: PREDNISOLONE
     Indication: IMMUNE THROMBOCYTOPENIA
     Dosage: 5 MG, QD
     Route: 048
  7. PREDNISOLONE. [Concomitant]
     Active Substance: PREDNISOLONE
     Indication: THROMBOCYTOPENIC PURPURA
     Dosage: UNK, QD
     Route: 048
  8. DANAZOL. [Concomitant]
     Active Substance: DANAZOL
     Indication: THROMBOCYTOPENIC PURPURA
     Dosage: 50 MG, QD
     Route: 048
  9. DANAZOL. [Concomitant]
     Active Substance: DANAZOL
     Dosage: UNK, QOD (STARETD 3 YEARS AGO)
     Route: 048

REACTIONS (13)
  - Colitis [Unknown]
  - Hypoaesthesia [Unknown]
  - Cardiac valve disease [Unknown]
  - Stomach mass [Unknown]
  - Chest pain [Unknown]
  - Feeling of despair [Unknown]
  - Platelet count decreased [Unknown]
  - Blood glucose increased [Unknown]
  - Insomnia [Unknown]
  - Gait disturbance [Unknown]
  - Fatigue [Unknown]
  - Stress [Unknown]
  - Hypercoagulation [Unknown]

NARRATIVE: CASE EVENT DATE: 202007
